FAERS Safety Report 6581873-3 (Version None)
Quarter: 2010Q1

REPORT INFORMATION
  Report Type: 
  Country: None (occurrence: None)
  Receive Date: 20100212
  Receipt Date: 20100212
  Transmission Date: 20100710
  Serious: No
  Sender: FDA-Public Use
  Company Number: None

PATIENT
  Age: 60 Year
  Sex: Male
  Weight: 131.7 kg

DRUGS (1)
  1. IOPROMIDE [Suspect]
     Indication: UROGRAM
     Dosage: 100 ML ONCE IV
     Route: 042
     Dates: start: 20091112, end: 20091112

REACTIONS (2)
  - PRURITUS [None]
  - URTICARIA [None]
